FAERS Safety Report 15772778 (Version 5)
Quarter: 2020Q4

REPORT INFORMATION
  Report Type: Report from Study
  Country: JP (occurrence: JP)
  Receive Date: 20181228
  Receipt Date: 20201028
  Transmission Date: 20210113
  Serious: Yes (Hospitalization)
  Sender: FDA-Public Use
  Company Number: JP-JNJFOC-20181235121

PATIENT
  Age: 25 Year
  Sex: Female
  Weight: 43 kg

DRUGS (30)
  1. REMICADE [Suspect]
     Active Substance: INFLIXIMAB
     Indication: BEHCET^S SYNDROME
     Route: 042
     Dates: start: 20180606, end: 20180606
  2. REMICADE [Suspect]
     Active Substance: INFLIXIMAB
     Route: 042
     Dates: start: 20181011
  3. PREDNISOLONE SODIUM SUCCINATE [Concomitant]
     Active Substance: PREDNISOLONE SODIUM SUCCINATE
     Route: 042
     Dates: start: 20180718, end: 20180723
  4. COLCHICINE. [Concomitant]
     Active Substance: COLCHICINE
     Indication: BEHCET^S SYNDROME
     Route: 048
     Dates: start: 20190128
  5. WARFARIN [Concomitant]
     Active Substance: WARFARIN
     Indication: BEHCET^S SYNDROME
  6. NEXIUM [Concomitant]
     Active Substance: ESOMEPRAZOLE MAGNESIUM
     Indication: GASTROOESOPHAGEAL REFLUX DISEASE
     Route: 048
     Dates: start: 20180807
  7. REMICADE [Suspect]
     Active Substance: INFLIXIMAB
     Indication: BEHCET^S SYNDROME
     Route: 042
     Dates: start: 20180621, end: 20180621
  8. PREDNISOLONE SODIUM SUCCINATE [Concomitant]
     Active Substance: PREDNISOLONE SODIUM SUCCINATE
     Route: 042
     Dates: start: 20180703, end: 20180709
  9. ADALIMUMAB [Concomitant]
     Active Substance: ADALIMUMAB
     Indication: BEHCET^S SYNDROME
     Route: 065
     Dates: start: 20190226
  10. PENTASA [Concomitant]
     Active Substance: MESALAMINE
     Indication: BEHCET^S SYNDROME
  11. REMICADE [Suspect]
     Active Substance: INFLIXIMAB
     Route: 042
     Dates: start: 20190123
  12. FERROUS CITRATE [Concomitant]
     Active Substance: FERROUS CITRATE
     Indication: BEHCET^S SYNDROME
  13. ADALIMUMAB [Concomitant]
     Active Substance: ADALIMUMAB
     Indication: BEHCET^S SYNDROME
     Route: 065
  14. RHEUMATREX [Concomitant]
     Active Substance: METHOTREXATE SODIUM
     Indication: BEHCET^S SYNDROME
     Route: 048
  15. MIYA-BM [Concomitant]
     Active Substance: CLOSTRIDIUM BUTYRICUM SPORES STRAIN M-55
     Indication: BEHCET^S SYNDROME
  16. REMICADE [Suspect]
     Active Substance: INFLIXIMAB
     Route: 042
     Dates: start: 20180816, end: 20180816
  17. PREDNISOLONE SODIUM SUCCINATE [Concomitant]
     Active Substance: PREDNISOLONE SODIUM SUCCINATE
     Indication: BEHCET^S SYNDROME
     Route: 042
     Dates: start: 20180606, end: 20180607
  18. PREDNISOLONE SODIUM SUCCINATE [Concomitant]
     Active Substance: PREDNISOLONE SODIUM SUCCINATE
     Indication: BEHCET^S SYNDROME
     Route: 042
     Dates: start: 20180625, end: 20180702
  19. FERROUS CITRATE [Concomitant]
     Active Substance: FERROUS CITRATE
     Indication: BEHCET^S SYNDROME
     Route: 048
     Dates: start: 20180731
  20. BAYASPIRIN [Concomitant]
     Active Substance: ASPIRIN
     Indication: BEHCET^S SYNDROME
     Route: 048
     Dates: start: 20180830
  21. COLCHICINE. [Concomitant]
     Active Substance: COLCHICINE
     Indication: BEHCET^S SYNDROME
     Route: 048
     Dates: start: 20190129
  22. PREDNISOLONE. [Concomitant]
     Active Substance: PREDNISOLONE
     Indication: BEHCET^S SYNDROME
     Route: 048
     Dates: start: 20180621, end: 20180624
  23. PREDNISOLONE SODIUM SUCCINATE [Concomitant]
     Active Substance: PREDNISOLONE SODIUM SUCCINATE
     Route: 042
     Dates: start: 20180710, end: 20180717
  24. BAYASPIRIN [Concomitant]
     Active Substance: ASPIRIN
     Indication: BEHCET^S SYNDROME
  25. MIYA-BM [Concomitant]
     Active Substance: CLOSTRIDIUM BUTYRICUM SPORES STRAIN M-55
     Indication: BEHCET^S SYNDROME
     Route: 048
     Dates: start: 20180724
  26. PREDNISOLONE. [Concomitant]
     Active Substance: PREDNISOLONE
     Indication: BEHCET^S SYNDROME
     Route: 048
     Dates: start: 20180608, end: 20180620
  27. METOLATE [Concomitant]
     Active Substance: METHOTREXATE
     Indication: BEHCET^S SYNDROME
     Route: 048
     Dates: start: 20190322
  28. PENTASA [Concomitant]
     Active Substance: MESALAMINE
     Indication: BEHCET^S SYNDROME
     Route: 048
  29. WARFARIN [Concomitant]
     Active Substance: WARFARIN
     Indication: BEHCET^S SYNDROME
     Route: 048
     Dates: start: 20180807
  30. METOLATE [Concomitant]
     Active Substance: METHOTREXATE
     Indication: BEHCET^S SYNDROME

REACTIONS (5)
  - Stoma creation [Recovered/Resolved with Sequelae]
  - Stoma closure [Recovering/Resolving]
  - Anastomotic ulcer [Recovering/Resolving]
  - Stoma creation [Recovering/Resolving]
  - Ileocaecal resection [Recovered/Resolved with Sequelae]

NARRATIVE: CASE EVENT DATE: 20180727
